FAERS Safety Report 15785422 (Version 1)
Quarter: 2019Q1

REPORT INFORMATION
  Report Type: Spontaneous
  Country: TR (occurrence: TR)
  Receive Date: 20190103
  Receipt Date: 20190103
  Transmission Date: 20190417
  Serious: Yes (Hospitalization)
  Sender: FDA-Public Use
  Company Number: TR-MYLANLABS-2018M1097218

PATIENT
  Age: 59 Year
  Sex: Female

DRUGS (5)
  1. DEXAMETHASONE. [Suspect]
     Active Substance: DEXAMETHASONE
     Indication: PLASMA CELL MYELOMA
     Dosage: ON 1ST, 2ND, 3RD AND 4TH DAY OF EVERY MONTH (TOTAL 2 CYCLES); LATER ADMINISTERED AT 40MG DOSE WIT...
     Route: 048
  2. BORTEZOMIB. [Suspect]
     Active Substance: BORTEZOMIB
     Indication: PLASMA CELL MYELOMA
     Dosage: ON 1ST, 8TH, 15TH AND 22ND DAY OF EVERY MONTH (TOTAL SIX CYCLES)
     Route: 058
  3. CYCLOPHOSPHAMIDE. [Concomitant]
     Active Substance: CYCLOPHOSPHAMIDE
     Indication: PLASMA CELL MYELOMA
     Dosage: ON 1ST DAY OF EVERY MONTH (TOTAL 2 CYCLES)
     Route: 042
  4. CYCLOPHOSPHAMIDE. [Concomitant]
     Active Substance: CYCLOPHOSPHAMIDE
     Dosage: ON 1ST, 8TH, 15TH AND 22ND DAY OF EVERY MONTH (TOTAL 6 CYCLES)
     Route: 048
  5. DEXAMETHASONE. [Suspect]
     Active Substance: DEXAMETHASONE
     Dosage: ON 1ST, 8TH, 15TH AND 22ND DAY OF EVERY MONTH (TOTAL 6 CYCLES)
     Route: 048

REACTIONS (1)
  - Mania [Recovering/Resolving]
